FAERS Safety Report 20364054 (Version 1)
Quarter: 2022Q1

REPORT INFORMATION
  Report Type: Spontaneous
  Country: CN (occurrence: CN)
  Receive Date: 20220121
  Receipt Date: 20220121
  Transmission Date: 20220423
  Serious: Yes (Other)
  Sender: FDA-Public Use
  Company Number: CN-PFIZER INC-202200048152

PATIENT
  Age: 80 Year
  Sex: Male
  Weight: 80 kg

DRUGS (6)
  1. IRINOTECAN [Suspect]
     Active Substance: IRINOTECAN
     Indication: Metastases to liver
     Dosage: 5 ML, 1X/DAY
     Route: 013
     Dates: start: 20211216, end: 20211216
  2. IRINOTECAN [Suspect]
     Active Substance: IRINOTECAN
     Indication: Colon cancer
  3. ELOXATIN [Suspect]
     Active Substance: OXALIPLATIN
     Indication: Metastases to liver
     Dosage: 50 MG, 1X/DAY
     Route: 013
     Dates: start: 20211216, end: 20211216
  4. ELOXATIN [Suspect]
     Active Substance: OXALIPLATIN
     Indication: Colon cancer
  5. RALTITREXED [Suspect]
     Active Substance: RALTITREXED
     Indication: Metastases to liver
     Dosage: 4 MG, 1X/DAY
     Route: 013
     Dates: start: 20211216, end: 20211216
  6. RALTITREXED [Suspect]
     Active Substance: RALTITREXED
     Indication: Colon cancer

REACTIONS (3)
  - Flushing [Recovering/Resolving]
  - Chest discomfort [Recovering/Resolving]
  - Rash [Recovering/Resolving]

NARRATIVE: CASE EVENT DATE: 20211216
